FAERS Safety Report 10722562 (Version 1)
Quarter: 2015Q1

REPORT INFORMATION
  Report Type: Spontaneous
  Country: FR (occurrence: FR)
  Receive Date: 20150120
  Receipt Date: 20150120
  Transmission Date: 20150721
  Serious: Yes (Death, Other)
  Sender: FDA-Public Use
  Company Number: FR-CIPLA LTD.-2015FR00394

PATIENT

DRUGS (5)
  1. CARBOPLATIN. [Suspect]
     Active Substance: CARBOPLATIN
     Indication: TRANSITIONAL CELL CARCINOMA
     Dosage: (AUC = 5, OVER 30 MIN) ON DAY 1 EVERY 21 DAYS FOR SIX CYCLES
     Route: 042
  2. GEMCITABINE [Suspect]
     Active Substance: GEMCITABINE\GEMCITABINE HYDROCHLORIDE
     Indication: TRANSITIONAL CELL CARCINOMA
     Dosage: (1000 MG/M2, 30 MIN) ON DAYS 1 AND 8, EVERY 21 DAYS FOR SIX CYCLES
     Route: 042
  3. CISPLATIN. [Suspect]
     Active Substance: CISPLATIN
     Indication: TRANSITIONAL CELL CARCINOMA
     Dosage: 70 MG/M2, 60 MIN, EVERY 21 DAYS FOR SIX CYCLES
  4. TRASTUZUMAB [Suspect]
     Active Substance: TRASTUZUMAB
     Indication: TRANSITIONAL CELL CARCINOMA
     Dosage: LOADING DOSE OF 8 MG/KG ON DAY 1
     Route: 042
  5. TRASTUZUMAB [Suspect]
     Active Substance: TRASTUZUMAB
     Dosage: 6 MG/KG EVERY 21 DAYS
     Route: 042

REACTIONS (4)
  - Thrombocytopenia [Unknown]
  - Febrile neutropenia [Unknown]
  - Eastern Cooperative Oncology Group performance status worsened [Unknown]
  - Toxicity to various agents [Fatal]
